FAERS Safety Report 8960119 (Version 1)
Quarter: 2012Q4

REPORT INFORMATION
  Report Type: 
  Country: US (occurrence: US)
  Receive Date: 20121212
  Receipt Date: 20121212
  Transmission Date: 20130627
  Serious: No
  Sender: FDA-Public Use
  Company Number: US-MYLANLABS-2012S1018571

PATIENT
  Age: 80 Year
  Sex: Female
  Weight: 52.16 kg

DRUGS (4)
  1. CLOPIDOGREL TABLETS USP [Suspect]
     Indication: STENT PLACEMENT
     Route: 048
     Dates: start: 201206, end: 20120827
  2. CLOPIDOGREL TABLETS USP [Suspect]
     Indication: STENT PLACEMENT
     Route: 048
     Dates: start: 20120903
  3. CRESTOR [Concomitant]
     Indication: BLOOD CHOLESTEROL INCREASED
     Route: 048
     Dates: start: 2008
  4. ZETIA [Concomitant]
     Indication: BLOOD CHOLESTEROL INCREASED
     Route: 048
     Dates: start: 2008

REACTIONS (1)
  - Contusion [Recovered/Resolved]
